FAERS Safety Report 7251310-4 (Version None)
Quarter: 2011Q1

REPORT INFORMATION
  Report Type: 
  Country: None (occurrence: None)
  Receive Date: 20110119
  Receipt Date: 20110107
  Transmission Date: 20110831
  Serious: Yes (Hospitalization, Other)
  Sender: FDA-Public Use
  Company Number: 016026

PATIENT
  Age: 40 Year
  Sex: Female
  Weight: 44 kg

DRUGS (5)
  1. LEVETIRACETAM [Concomitant]
  2. TOPIRAMATE [Concomitant]
  3. KEPPRA [Suspect]
     Indication: CONVULSION
     Dosage: (500 MG ORAL) ; (1000 MG) ; (3000 MG) ; (DOSE REDUCED)
     Route: 048
     Dates: start: 20100614
  4. KEPPRA [Suspect]
     Indication: CONVULSION
     Dosage: (500 MG ORAL) ; (1000 MG) ; (3000 MG) ; (DOSE REDUCED)
     Route: 048
     Dates: end: 20110106
  5. CLONAZEPAM [Concomitant]

REACTIONS (13)
  - DEPRESSION [None]
  - NAUSEA [None]
  - MIGRAINE [None]
  - CLUMSINESS [None]
  - THERAPEUTIC RESPONSE UNEXPECTED [None]
  - SEDATION [None]
  - JUDGEMENT IMPAIRED [None]
  - CONSTIPATION [None]
  - SOMNOLENCE [None]
  - EPILEPSY [None]
  - FRUSTRATION [None]
  - ALOPECIA [None]
  - AMNESIA [None]
